FAERS Safety Report 12504172 (Version 1)
Quarter: 2016Q2

REPORT INFORMATION
  Report Type: Spontaneous
  Country: AU (occurrence: AU)
  Receive Date: 20160628
  Receipt Date: 20160628
  Transmission Date: 20160815
  Serious: Yes (Other)
  Sender: FDA-Public Use
  Company Number: AU-MYLANLABS-2016M1026590

PATIENT

DRUGS (5)
  1. FLUOROURACIL. [Concomitant]
     Active Substance: FLUOROURACIL
     Indication: METASTASES TO LIVER
     Dosage: 12 CYCLE
     Route: 065
     Dates: start: 201110
  2. CAPECITABINE. [Suspect]
     Active Substance: CAPECITABINE
     Indication: RECTAL ADENOCARCINOMA
     Dosage: FOR EIGHT CYCLES (6 MONTHS)
     Route: 065
  3. CAPECITABINE. [Suspect]
     Active Substance: CAPECITABINE
     Dosage: UNK
     Route: 065
     Dates: start: 201003
  4. OXALIPLATIN. [Suspect]
     Active Substance: OXALIPLATIN
     Indication: METASTASES TO LIVER
     Dosage: 12 CYCLES
     Route: 065
     Dates: start: 201110
  5. LEUCOVORIN                         /00566701/ [Concomitant]
     Active Substance: LEUCOVORIN
     Indication: METASTASES TO LIVER
     Dosage: 12 CYCLE
     Route: 065
     Dates: start: 201110

REACTIONS (3)
  - Acute promyelocytic leukaemia [Recovered/Resolved]
  - Cellulitis [Recovered/Resolved]
  - Bone marrow reticulin fibrosis [Recovered/Resolved]

NARRATIVE: CASE EVENT DATE: 201404
